FAERS Safety Report 20792181 (Version 3)
Quarter: 2022Q3

REPORT INFORMATION
  Report Type: Report from Study
  Country: US (occurrence: US)
  Receive Date: 20220505
  Receipt Date: 20220909
  Transmission Date: 20221027
  Serious: No
  Sender: FDA-Public Use
  Company Number: US-LUNDBECK-DKLU3047558

PATIENT
  Age: 30 Year
  Sex: Female

DRUGS (2)
  1. VYEPTI [Suspect]
     Active Substance: EPTINEZUMAB-JJMR
     Indication: Migraine
     Route: 041
     Dates: start: 20220425
  2. AJOVY [Concomitant]
     Active Substance: FREMANEZUMAB-VFRM
     Indication: Migraine
     Route: 065

REACTIONS (6)
  - Seasonal allergy [Unknown]
  - Condition aggravated [Unknown]
  - Headache [Unknown]
  - Thirst [Unknown]
  - Dry mouth [Unknown]
  - Migraine [Recovering/Resolving]
